FAERS Safety Report 9646278 (Version 1)
Quarter: 2013Q4

REPORT INFORMATION
  Report Type: Report from Study
  Country: BR (occurrence: BR)
  Receive Date: 20131025
  Receipt Date: 20131025
  Transmission Date: 20140711
  Serious: Yes (Other)
  Sender: FDA-Public Use
  Company Number: PHHY2013BR120719

PATIENT
  Sex: Male
  Weight: 76 kg

DRUGS (5)
  1. EXELON PATCH [Suspect]
     Indication: MEMORY IMPAIRMENT
     Dosage: 4.6 (9 MG/5 CM2)AFTER SHOWER
     Route: 062
  2. EXELON PATCH [Suspect]
     Dosage: 9.5 MG , (18 MG/10 CM2), AFTER SHOWER
     Route: 062
  3. SIMVASTATIN [Concomitant]
     Dosage: UNK UKN, UNK
  4. LOSARTAN POTASSICO [Concomitant]
     Dosage: UNK UKN, UNK
  5. SOMALGIN [Concomitant]
     Dosage: UNK UKN, UNK

REACTIONS (3)
  - Varicose vein [Not Recovered/Not Resolved]
  - Local swelling [Not Recovered/Not Resolved]
  - Application site hypersensitivity [Not Recovered/Not Resolved]
